FAERS Safety Report 18333874 (Version 1)
Quarter: 2020Q3

REPORT INFORMATION
  Report Type: Spontaneous
  Country: US (occurrence: US)
  Receive Date: 20200930
  Receipt Date: 20200930
  Transmission Date: 20201103
  Serious: Yes (Hospitalization)
  Sender: FDA-Public Use
  Company Number: None

PATIENT
  Age: 58 Year
  Sex: Female

DRUGS (4)
  1. COPAXONE [Concomitant]
     Active Substance: GLATIRAMER ACETATE
  2. GLATIRAMER [Suspect]
     Active Substance: GLATIRAMER
     Indication: MULTIPLE SCLEROSIS
     Dosage: ?          OTHER FREQUENCY:THREE TIMES A WEEK;?
     Route: 058
  3. MULTI VITAMIN [Concomitant]
     Active Substance: VITAMINS
  4. TAMOXIFEN [Concomitant]
     Active Substance: TAMOXIFEN

REACTIONS (5)
  - Product dose omission issue [None]
  - Polyp [None]
  - Injection site reaction [None]
  - Multiple sclerosis [None]
  - Surgery [None]

NARRATIVE: CASE EVENT DATE: 20200930
